FAERS Safety Report 8914562 (Version 9)
Quarter: 2014Q3

REPORT INFORMATION
  Report Type: Spontaneous
  Country: CA (occurrence: CA)
  Receive Date: 20121119
  Receipt Date: 20140808
  Transmission Date: 20150326
  Serious: Yes (Other)
  Sender: FDA-Public Use
  Company Number: CA-ROCHE-1155854

PATIENT
  Age: 37 Year
  Sex: Female
  Weight: 74 kg

DRUGS (8)
  1. XOLAIR [Suspect]
     Active Substance: OMALIZUMAB
     Indication: ASTHMA
     Route: 058
     Dates: start: 20081120
  2. SINGULAIR [Concomitant]
     Active Substance: MONTELUKAST SODIUM
  3. UNIPHYL [Concomitant]
     Active Substance: THEOPHYLLINE ANHYDROUS
  4. XOLAIR [Suspect]
     Active Substance: OMALIZUMAB
     Route: 058
     Dates: start: 20090414
  5. XOLAIR [Suspect]
     Active Substance: OMALIZUMAB
     Route: 058
     Dates: start: 20140212
  6. ADVAIR HFA [Concomitant]
     Active Substance: FLUTICASONE PROPIONATE\SALMETEROL XINAFOATE
  7. QVAR [Concomitant]
     Active Substance: BECLOMETHASONE DIPROPIONATE
  8. XOLAIR [Suspect]
     Active Substance: OMALIZUMAB
     Route: 058
     Dates: start: 20131216

REACTIONS (13)
  - Bronchial disorder [Unknown]
  - Nasopharyngitis [Unknown]
  - Pigmentation disorder [Unknown]
  - Influenza [Recovering/Resolving]
  - Lacrimation increased [Unknown]
  - Palpitations [Unknown]
  - Productive cough [Recovering/Resolving]
  - Dyspnoea [Unknown]
  - Hypertension [Unknown]
  - Rhinorrhoea [Unknown]
  - Tachycardia [Recovering/Resolving]
  - Pneumonia [Unknown]
  - Depression [Unknown]

NARRATIVE: CASE EVENT DATE: 201302
